FAERS Safety Report 16493690 (Version 2)
Quarter: 2019Q3

REPORT INFORMATION
  Report Type: Spontaneous
  Country: US (occurrence: US)
  Receive Date: 20190628
  Receipt Date: 20190815
  Transmission Date: 20191004
  Serious: Yes (Hospitalization, Other)
  Sender: FDA-Public Use
  Company Number: US-PFIZER INC-2019275525

PATIENT
  Age: 47 Year
  Sex: Female

DRUGS (3)
  1. AUBAGIO [Suspect]
     Active Substance: TERIFLUNOMIDE
     Indication: MULTIPLE SCLEROSIS
     Dosage: 14 MG, DAILY
     Route: 048
     Dates: start: 20170530
  2. SOLU-MEDROL [Suspect]
     Active Substance: METHYLPREDNISOLONE SODIUM SUCCINATE
     Dosage: UNK
     Dates: start: 201810, end: 201811
  3. SOLU-MEDROL [Suspect]
     Active Substance: METHYLPREDNISOLONE SODIUM SUCCINATE
     Dosage: UNK
     Dates: start: 201905, end: 201906

REACTIONS (16)
  - Vomiting [Unknown]
  - Compression fracture [Unknown]
  - Tremor [Unknown]
  - Arthritis [Unknown]
  - Catheter site haemorrhage [Unknown]
  - Stress [Unknown]
  - Mood altered [Unknown]
  - Gastrointestinal pain [Unknown]
  - Muscular weakness [Unknown]
  - Hypoaesthesia [Unknown]
  - Insomnia [Unknown]
  - Seizure [Unknown]
  - Balance disorder [Unknown]
  - Fall [Unknown]
  - Malaise [Unknown]
  - Accident [Unknown]

NARRATIVE: CASE EVENT DATE: 201810
